FAERS Safety Report 5430590-1 (Version None)
Quarter: 2007Q3

REPORT INFORMATION
  Report Type: 
  Country: None (occurrence: None)
  Receive Date: 20070828
  Receipt Date: 20070821
  Transmission Date: 20080115
  Serious: Yes (Life-Threatening)
  Sender: FDA-Public Use
  Company Number: 160252ISR

PATIENT
  Sex: Male

DRUGS (1)
  1. CARBOPLATIN [Suspect]

REACTIONS (1)
  - ACUTE MYOCARDIAL INFARCTION [None]
